FAERS Safety Report 11594710 (Version 1)
Quarter: 2015Q4

REPORT INFORMATION
  Report Type: Spontaneous
  Country: BR (occurrence: BR)
  Receive Date: 20151005
  Receipt Date: 20151005
  Transmission Date: 20160304
  Serious: Yes (Other)
  Sender: FDA-Public Use
  Company Number: BR-SA-2015SA149868

PATIENT
  Sex: Male

DRUGS (1)
  1. LANTUS [Suspect]
     Active Substance: INSULIN GLARGINE
     Route: 065

REACTIONS (7)
  - Wrong technique in product usage process [Unknown]
  - Hyperaemia [Unknown]
  - Injection site reaction [Unknown]
  - Erysipelas [Unknown]
  - Drug administration error [Unknown]
  - Feeling hot [Unknown]
  - Injection site induration [Unknown]
